FAERS Safety Report 7761219-5 (Version None)
Quarter: 2011Q3

REPORT INFORMATION
  Report Type: 
  Country: None (occurrence: None)
  Receive Date: 20110920
  Receipt Date: 20110908
  Transmission Date: 20111222
  Serious: Yes (Hospitalization)
  Sender: FDA-Public Use
  Company Number: PHHY2011IT79699

PATIENT
  Sex: Male

DRUGS (3)
  1. KEPPRA [Concomitant]
     Dosage: 1 G, UNK
     Dates: start: 20020101, end: 20110423
  2. TICLOPIDINE HCL [Suspect]
     Indication: VASCULITIS CEREBRAL
     Dosage: 1 OT (POSOLOGIC UNIT)
     Dates: start: 20020101, end: 20110423
  3. MEPRAL [Concomitant]
     Dosage: 20 MG, UNK
     Dates: start: 20020101, end: 20110423

REACTIONS (3)
  - HYPOSIDERAEMIA [None]
  - BLOOD PRESSURE ABNORMAL [None]
  - ANAEMIA [None]
